FAERS Safety Report 4787734-4 (Version None)
Quarter: 2005Q3

REPORT INFORMATION
  Report Type: 
  Country: None (occurrence: None)
  Receive Date: 20050926
  Receipt Date: 20050819
  Transmission Date: 20060218
  Serious: Yes (Death)
  Sender: FDA-Public Use
  Company Number: 216469

PATIENT
  Age: 80 Year
  Sex: Female

DRUGS (9)
  1. AVASTIN [Suspect]
     Indication: COLORECTAL CANCER METASTATIC
     Dosage: 300MG
     Dates: start: 20050630
  2. FLUOROURACIL [Concomitant]
  3. LEUCOVORIN CALCIUM [Concomitant]
  4. OXALIPLATIN (OXALIPLATIN) [Concomitant]
  5. COUMADIN [Concomitant]
  6. VICODIN (HYDROCODONE BITARTRATE, ACETAMINOPHEN) [Concomitant]
  7. AMBIEN [Concomitant]
  8. IRON (IRON NOS) [Concomitant]
  9. ATARAX [Concomitant]

REACTIONS (1)
  - GASTROINTESTINAL HAEMORRHAGE [None]
